FAERS Safety Report 24196153 (Version 2)
Quarter: 2024Q3

REPORT INFORMATION
  Report Type: Spontaneous
  Country: US (occurrence: US)
  Receive Date: 20240809
  Receipt Date: 20240820
  Transmission Date: 20241017
  Serious: No
  Sender: GILEAD
  Company Number: US-GILEAD-2024-0683316

PATIENT
  Age: 56 Year
  Sex: Male

DRUGS (7)
  1. BIKTARVY [Suspect]
     Active Substance: BICTEGRAVIR SODIUM\EMTRICITABINE\TENOFOVIR ALAFENAMIDE FUMARATE
     Indication: HIV infection
     Dosage: UNK
     Route: 065
  2. PANTOPRAZOLE [Concomitant]
     Active Substance: PANTOPRAZOLE
  3. QUERCETIN [Concomitant]
     Active Substance: QUERCETIN
  4. BROMELAINS [Concomitant]
     Active Substance: BROMELAINS
  5. NIACIN [Concomitant]
     Active Substance: NIACIN
  6. PRASTERONE [Concomitant]
     Active Substance: PRASTERONE
  7. POTASSIUM CITRATE [Concomitant]
     Active Substance: POTASSIUM CITRATE

REACTIONS (1)
  - Viral load increased [Unknown]
